FAERS Safety Report 7346072-6 (Version None)
Quarter: 2011Q1

REPORT INFORMATION
  Report Type: 
  Country: None (occurrence: None)
  Receive Date: 20110311
  Receipt Date: 20100505
  Transmission Date: 20110831
  Serious: Yes (Hospitalization, Other)
  Sender: FDA-Public Use
  Company Number: US-SHIRE-SPV1-2010-00909

PATIENT
  Sex: Female
  Weight: 56.689 kg

DRUGS (10)
  1. CORICIDIN [Suspect]
     Dosage: 32 DF, ONE DOSE
     Route: 048
     Dates: start: 20090801
  2. VYVANSE [Suspect]
     Route: 048
  3. VYVANSE [Concomitant]
     Route: 048
  4. CORICIDIN [Suspect]
     Dosage: 44 DF, ONE DOSE
     Route: 048
     Dates: start: 20090408
  5. CORICIDIN [Suspect]
     Indication: DRUG ABUSE
     Dates: start: 20090201
  6. ZOLOFT [Concomitant]
  7. TRILEPTAL [Concomitant]
  8. REMERON [Suspect]
     Indication: DEPRESSION
  9. CORICIDIN [Suspect]
     Dosage: 6 DF, ONE DOSE
     Route: 048
     Dates: start: 20091101
  10. CORICIDIN [Suspect]
     Dosage: UNK, ONE DOSE
     Route: 048
     Dates: start: 20100201

REACTIONS (5)
  - OFF LABEL USE [None]
  - CONVULSION [None]
  - HEART RATE INCREASED [None]
  - DRUG INTERACTION [None]
  - HALLUCINATION [None]
